FAERS Safety Report 8473531-5 (Version None)
Quarter: 2012Q2

REPORT INFORMATION
  Report Type: 
  Country: None (occurrence: None)
  Receive Date: 20120622
  Receipt Date: 20120622
  Transmission Date: 20120825
  Serious: Yes (Hospitalization)
  Sender: FDA-Public Use
  Company Number: None

PATIENT
  Age: 91 Year
  Sex: Male
  Weight: 101.6 kg

DRUGS (2)
  1. DOXAZOSIN MESYLATE [Suspect]
     Dosage: 2 MG BID PO
     Route: 048
     Dates: start: 20120605, end: 20120606
  2. AMLODIPINE [Suspect]
     Indication: HYPERTENSION
     Dosage: 10 MG ONCE PO
     Route: 048
     Dates: start: 20120606, end: 20120606

REACTIONS (4)
  - STRESS [None]
  - INFECTION [None]
  - BLOOD PRESSURE SYSTOLIC INCREASED [None]
  - HYPOTENSION [None]
